FAERS Safety Report 11665443 (Version 14)
Quarter: 2018Q1

REPORT INFORMATION
  Report Type: Spontaneous
  Country: US (occurrence: US)
  Receive Date: 20151027
  Receipt Date: 20180321
  Transmission Date: 20180508
  Serious: Yes (Other)
  Sender: FDA-Public Use
  Company Number: US-PFIZER INC-2015356674

PATIENT
  Age: 42 Year
  Sex: Female
  Weight: 64.5 kg

DRUGS (16)
  1. TYLENOL [Concomitant]
     Active Substance: ACETAMINOPHEN
     Dosage: TWO 1 HOUR PRIOR TO INFUSION
     Dates: start: 20151210
  2. PEPCID [Concomitant]
     Active Substance: FAMOTIDINE
     Indication: PREMEDICATION
     Dosage: UNK
     Dates: start: 201510
  3. ELELYSO [Suspect]
     Active Substance: TALIGLUCERASE ALFA
     Dosage: 3800 UNITS, EVERY 2 WEEKS
     Route: 042
     Dates: start: 20151015
  4. BENADRYL [Concomitant]
     Active Substance: DIPHENHYDRAMINE HYDROCHLORIDE
     Indication: PREMEDICATION
     Dosage: UNK
     Route: 048
     Dates: start: 201510
  5. CLARITIN [Concomitant]
     Active Substance: LORATADINE
     Dosage: UNK, 12 HOURS AND 2 HOURS BEFORE INFUSION
  6. BENADRYL [Concomitant]
     Active Substance: DIPHENHYDRAMINE HYDROCHLORIDE
     Dosage: 50 MG, UNK
     Route: 048
     Dates: start: 20151112
  7. ELELYSO [Suspect]
     Active Substance: TALIGLUCERASE ALFA
     Dosage: 3800 UNITS, EVERY 2 WEEKS
     Route: 042
     Dates: start: 20160303
  8. ELELYSO [Suspect]
     Active Substance: TALIGLUCERASE ALFA
     Dosage: 3800 UNK, UNK
     Dates: start: 201510
  9. CLARITIN [Concomitant]
     Active Substance: LORATADINE
     Indication: PREMEDICATION
     Dosage: 1 DF, UNK
     Dates: start: 201510
  10. TYLENOL [Concomitant]
     Active Substance: ACETAMINOPHEN
     Indication: PREMEDICATION
     Dosage: 650 MG, UNK
     Dates: start: 201510
  11. BENADRYL [Concomitant]
     Active Substance: DIPHENHYDRAMINE HYDROCHLORIDE
     Dosage: 50 MG, AT START OF INFUSION
     Route: 042
  12. PEPCID [Concomitant]
     Active Substance: FAMOTIDINE
     Dosage: ONE 12 HOURS PRIOR TO INFUSION AND THEN AGAIN 2 HOURS PRIOR TO INFUSION
     Dates: start: 201512
  13. ELELYSO [Suspect]
     Active Substance: TALIGLUCERASE ALFA
     Indication: GAUCHER^S DISEASE
     Dosage: 3800 UNITS, EVERY 2 WEEKS
     Dates: start: 20151013
  14. ELELYSO [Suspect]
     Active Substance: TALIGLUCERASE ALFA
     Dosage: 3800 UNITS, EVERY 2 WEEKS
     Route: 042
     Dates: start: 20151029
  15. BENADRYL [Concomitant]
     Active Substance: DIPHENHYDRAMINE HYDROCHLORIDE
     Dosage: UNK, AS NEEDED
     Route: 042
  16. PEPCID [Concomitant]
     Active Substance: FAMOTIDINE
     Dosage: UNK, 12 HOURS AND 2 HOURS BEFORE INFUSION

REACTIONS (8)
  - Eyelid oedema [Recovered/Resolved]
  - Nausea [Not Recovered/Not Resolved]
  - Eyelids pruritus [Recovered/Resolved]
  - Cold sweat [Recovered/Resolved]
  - Retinal detachment [Not Recovered/Not Resolved]
  - Dyspepsia [Not Recovered/Not Resolved]
  - Abdominal discomfort [Not Recovered/Not Resolved]
  - Cough [Recovered/Resolved]

NARRATIVE: CASE EVENT DATE: 201510
